FAERS Safety Report 13938100 (Version 2)
Quarter: 2017Q3

REPORT INFORMATION
  Report Type: Report from Study
  Country: US (occurrence: US)
  Receive Date: 20170905
  Receipt Date: 20170915
  Transmission Date: 20171127
  Serious: Yes (Hospitalization)
  Sender: FDA-Public Use
  Company Number: US-ACTELION-A-US2017-158913

PATIENT
  Age: 54 Year
  Sex: Female
  Weight: 176.42 kg

DRUGS (4)
  1. UPTRAVI [Suspect]
     Active Substance: SELEXIPAG
     Dosage: 200 MCG, BID
     Route: 048
     Dates: start: 20170804, end: 20170811
  2. UPTRAVI [Suspect]
     Active Substance: SELEXIPAG
     Indication: PULMONARY ARTERIAL HYPERTENSION
     Dosage: 400 MCG, BID
     Route: 048
     Dates: start: 20170812, end: 20170814
  3. UPTRAVI [Suspect]
     Active Substance: SELEXIPAG
     Dosage: 200 MCG, BID
     Route: 048
     Dates: start: 20170815, end: 20170823
  4. ADCIRCA [Concomitant]
     Active Substance: TADALAFIL
     Dosage: UNK

REACTIONS (6)
  - Swelling [Unknown]
  - Sensation of foreign body [Unknown]
  - Arthralgia [Unknown]
  - Pain in extremity [Unknown]
  - Gait inability [Unknown]
  - Fluid retention [Unknown]

NARRATIVE: CASE EVENT DATE: 20170814
